FAERS Safety Report 14815915 (Version 3)
Quarter: 2018Q3

REPORT INFORMATION
  Report Type: Spontaneous
  Country: IT (occurrence: IT)
  Receive Date: 20180426
  Receipt Date: 20180814
  Transmission Date: 20181010
  Serious: Yes (Other)
  Sender: FDA-Public Use
  Company Number: IT-TAKEDA-2018TEU002234

PATIENT
  Age: 58 Year
  Sex: Male

DRUGS (6)
  1. LANSOX [Suspect]
     Active Substance: LANSOPRAZOLE
     Indication: PRODUCT USED FOR UNKNOWN INDICATION
     Dosage: 30 MG, QD
     Route: 048
     Dates: start: 20170401, end: 20170510
  2. ACETYLSALICYLIC ACID [Interacting]
     Active Substance: ASPIRIN
     Indication: PRODUCT USED FOR UNKNOWN INDICATION
     Dosage: 100 MG, QD
     Route: 065
     Dates: start: 20170401, end: 20170510
  3. CARDICOR [Interacting]
     Active Substance: BISOPROLOL
     Indication: CARDIAC FAILURE
     Dosage: 5 MG, QD
     Route: 048
     Dates: start: 20170401, end: 20170510
  4. PLAVIX [Interacting]
     Active Substance: CLOPIDOGREL BISULFATE
     Indication: MYOCARDIAL INFARCTION
     Dosage: 75 MG, QD
     Route: 048
     Dates: start: 20170401, end: 20170510
  5. CLEXANE [Interacting]
     Active Substance: ENOXAPARIN SODIUM
     Indication: PRODUCT USED FOR UNKNOWN INDICATION
     Dosage: 0.4 ML, QD
     Route: 030
     Dates: start: 20170401, end: 20170510
  6. ORUDIS [Interacting]
     Active Substance: KETOPROFEN
     Indication: PRODUCT USED FOR UNKNOWN INDICATION
     Dosage: UNK
     Route: 065

REACTIONS (3)
  - Angioedema [Recovering/Resolving]
  - Drug interaction [Recovering/Resolving]
  - Coronary artery disease [Recovering/Resolving]

NARRATIVE: CASE EVENT DATE: 20170510
